FAERS Safety Report 7151399-7 (Version None)
Quarter: 2010Q4

REPORT INFORMATION
  Report Type: 
  Country: None (occurrence: None)
  Receive Date: 20101210
  Receipt Date: 20101130
  Transmission Date: 20110411
  Serious: Yes (Hospitalization, Other)
  Sender: FDA-Public Use
  Company Number: GB-MERCK-1012USA00397

PATIENT
  Age: 84 Year
  Sex: Male

DRUGS (3)
  1. DECADRON [Suspect]
     Indication: MULTIPLE MYELOMA
     Route: 048
     Dates: start: 20100831
  2. VELCADE [Suspect]
     Indication: MULTIPLE MYELOMA
     Route: 042
     Dates: start: 20100831, end: 20101012
  3. ASPIRIN [Concomitant]
     Route: 065

REACTIONS (3)
  - AUTONOMIC NEUROPATHY [None]
  - DIZZINESS [None]
  - ORTHOSTATIC HYPOTENSION [None]
